FAERS Safety Report 16630724 (Version 1)
Quarter: 2019Q3

REPORT INFORMATION
  Report Type: Spontaneous
  Country: US (occurrence: US)
  Receive Date: 20190725
  Receipt Date: 20190725
  Transmission Date: 20191004
  Serious: No
  Sender: FDA-Public Use
  Company Number: US-GLAXOSMITHKLINE-US2019127917

PATIENT
  Sex: Female

DRUGS (5)
  1. LOSARTAN AND HYDROCHLOROTHIAZIDE [Suspect]
     Active Substance: HYDROCHLOROTHIAZIDE\LOSARTAN POTASSIUM
     Indication: BLOOD PRESSURE ABNORMAL
     Dosage: 12.5 MG, 1D
     Route: 048
  2. LOSARTAN. [Suspect]
     Active Substance: LOSARTAN
     Dosage: 12.5 MG, TAKING 1/2 OR 1/4 OF THE 12.5 MG. TABLET PER DAY
     Route: 065
  3. COREG [Suspect]
     Active Substance: CARVEDILOL
     Indication: MITRAL VALVE INCOMPETENCE
     Dosage: 6.25 MG, BID
     Route: 048
     Dates: start: 201711
  4. LISINOPRIL. [Suspect]
     Active Substance: LISINOPRIL
     Indication: HYPERTENSION
     Dosage: UNK
     Route: 048
     Dates: end: 2019
  5. LOSARTAN. [Suspect]
     Active Substance: LOSARTAN
     Indication: BLOOD PRESSURE ABNORMAL
     Dosage: 12.5 MG, QD
     Route: 065

REACTIONS (17)
  - Arthralgia [Not Recovered/Not Resolved]
  - Fatigue [Recovered/Resolved]
  - Asthenia [Unknown]
  - Myalgia [Unknown]
  - Mobility decreased [Unknown]
  - Hypotension [Unknown]
  - Pain in extremity [Unknown]
  - Back pain [Not Recovered/Not Resolved]
  - Malaise [Recovered/Resolved]
  - Muscle spasms [Unknown]
  - Anxiety [Unknown]
  - Dizziness [Recovered/Resolved]
  - Gait inability [Not Recovered/Not Resolved]
  - Limb asymmetry [Unknown]
  - Nausea [Recovered/Resolved]
  - Musculoskeletal disorder [Unknown]
  - Condition aggravated [Unknown]

NARRATIVE: CASE EVENT DATE: 2018
